FAERS Safety Report 23389375 (Version 2)
Quarter: 2024Q1

REPORT INFORMATION
  Report Type: Report from Study
  Country: US (occurrence: US)
  Receive Date: 20240110
  Receipt Date: 20240117
  Transmission Date: 20240410
  Serious: Yes (Death, Hospitalization, Other)
  Sender: FDA-Public Use
  Company Number: US-ABBVIE-5580001

PATIENT
  Age: 81 Year
  Sex: Female
  Weight: 49.9 kg

DRUGS (10)
  1. RINVOQ [Suspect]
     Active Substance: UPADACITINIB
     Indication: Colitis ulcerative
     Dosage: FORM STRENGTH: 15 MILLIGRAM
     Route: 048
     Dates: end: 20231105
  2. RINVOQ [Suspect]
     Active Substance: UPADACITINIB
     Indication: Colitis ulcerative
     Dosage: FORM STRENGTH: 15 MILLIGRAM
     Route: 048
  3. SERTRALINE [Concomitant]
     Active Substance: SERTRALINE HYDROCHLORIDE
     Indication: Depression
  4. VITAMIN D3 [Concomitant]
     Active Substance: CHOLECALCIFEROL
     Indication: Vitamin supplementation
  5. ALENDRONATE [Concomitant]
     Active Substance: ALENDRONATE SODIUM
     Indication: Bone disorder
  6. SPIRIVA [Concomitant]
     Active Substance: TIOTROPIUM BROMIDE MONOHYDRATE
     Indication: Chronic obstructive pulmonary disease
  7. OMEPRAZOLE [Concomitant]
     Active Substance: OMEPRAZOLE
     Indication: Gastrointestinal disorder
  8. AMLODIPINE [Concomitant]
     Active Substance: AMLODIPINE BESYLATE
     Indication: Blood pressure measurement
  9. GABAPENTIN [Concomitant]
     Active Substance: GABAPENTIN
     Indication: Restless legs syndrome
  10. ARIPIPRAZOLE [Concomitant]
     Active Substance: ARIPIPRAZOLE
     Indication: Depression

REACTIONS (13)
  - Death [Fatal]
  - Pneumonia [Unknown]
  - Blood potassium increased [Recovered/Resolved]
  - Loss of consciousness [Recovered/Resolved]
  - Arrhythmia [Recovered/Resolved]
  - Nephritis [Unknown]
  - Fall [Recovered/Resolved]
  - Fall [Recovered/Resolved]
  - Fall [Not Recovered/Not Resolved]
  - Shoulder fracture [Not Recovered/Not Resolved]
  - Blood sodium decreased [Recovered/Resolved]
  - Femur fracture [Recovered/Resolved]
  - Internal haemorrhage [Unknown]

NARRATIVE: CASE EVENT DATE: 20211001
